FAERS Safety Report 8904101 (Version 1)
Quarter: 2012Q4

REPORT INFORMATION
  Report Type: 
  Country: US (occurrence: US)
  Receive Date: 20121112
  Receipt Date: 20121112
  Transmission Date: 20130627
  Serious: No
  Sender: FDA-Public Use
  Company Number: US-COVIDIEN/TYCO HEALTHCARE/MALLINCKRODT-T201203810

PATIENT
  Age: 57 Year
  Sex: Female

DRUGS (5)
  1. FENTANYL TRANSDERMAL SYSTEM [Suspect]
     Indication: NEUROPATHY PERIPHERAL
     Dosage: 50 ug/hr, Q 72 hrs
     Route: 062
     Dates: start: 201210
  2. FENTANYL [Concomitant]
     Dosage: UNK
  3. GABAPENTIN [Concomitant]
     Dosage: UNK
  4. PERCOCET                           /00446701/ [Concomitant]
     Indication: BREAKTHROUGH PAIN
     Dosage: 10/325 TID
     Route: 048
  5. SPIRIVA [Concomitant]
     Dosage: UNK

REACTIONS (1)
  - Night sweats [Not Recovered/Not Resolved]
